FAERS Safety Report 6250265-9 (Version None)
Quarter: 2009Q2

REPORT INFORMATION
  Report Type: 
  Country: None (occurrence: None)
  Receive Date: 20090628
  Receipt Date: 20090628
  Transmission Date: 20091009
  Serious: No
  Sender: FDA-Public Use
  Company Number: None

PATIENT
  Age: 67 Year
  Sex: Female
  Weight: 50 kg

DRUGS (1)
  1. ESTROPIPATE 1.5 MG WATSON [Suspect]
     Indication: HORMONE REPLACEMENT THERAPY
     Dosage: 90 PILLS IN CONTAINER 1 PILL PER DAY
     Dates: start: 20090527, end: 20090603

REACTIONS (2)
  - HOT FLUSH [None]
  - PRODUCT SUBSTITUTION ISSUE [None]
